FAERS Safety Report 14560227 (Version 1)
Quarter: 2018Q1

REPORT INFORMATION
  Report Type: Spontaneous
  Country: US (occurrence: US)
  Receive Date: 20180222
  Receipt Date: 20180222
  Transmission Date: 20180509
  Serious: No
  Sender: FDA-Public Use
  Company Number: US-TEVA-2018-US-846988

PATIENT
  Sex: Female

DRUGS (1)
  1. FIRST AID BACITRACIN ZINC [Suspect]
     Active Substance: BACITRACIN ZINC
     Indication: NAIL INJURY
     Route: 065
     Dates: start: 20180108

REACTIONS (1)
  - Drug ineffective [Unknown]

NARRATIVE: CASE EVENT DATE: 20180108
